FAERS Safety Report 8533150-9 (Version None)
Quarter: 2012Q3

REPORT INFORMATION
  Report Type: 
  Country: None (occurrence: None)
  Receive Date: 20120724
  Receipt Date: 20120713
  Transmission Date: 20120928
  Serious: Yes (Death)
  Sender: FDA-Public Use
  Company Number: US-VERTEX PHARMACEUTICALS INC.-AE-2012-003310

PATIENT
  Age: 55 Year
  Sex: Male

DRUGS (7)
  1. PEG-INTRON [Concomitant]
     Indication: HEPATITIS C
     Dates: start: 20111120
  2. LEXAPRO [Concomitant]
  3. RIBAVIRIN [Concomitant]
     Dates: start: 20120118
  4. RIBAVIRIN [Concomitant]
     Indication: HEPATITIS C
     Dates: end: 20120118
  5. LISINIPRIL [Concomitant]
  6. FISH OIL [Concomitant]
  7. INCIVEK [Suspect]
     Indication: HEPATITIS C
     Dates: start: 20111120

REACTIONS (1)
  - DEATH [None]
